FAERS Safety Report 9178028 (Version 1)
Quarter: 2013Q1

REPORT INFORMATION
  Report Type: Spontaneous
  Country: AU (occurrence: AU)
  Receive Date: 20130321
  Receipt Date: 20130321
  Transmission Date: 20140127
  Serious: Yes (Other)
  Sender: FDA-Public Use
  Company Number: PHHY2013AU024773

PATIENT
  Sex: Female

DRUGS (2)
  1. GILENYA [Suspect]
     Indication: PROGRESSIVE MULTIPLE SCLEROSIS
     Dosage: 0.5 MG, DAILY
     Route: 048
     Dates: start: 201212, end: 201303
  2. LAMOTRIGINE [Concomitant]
     Dosage: UNK UKN, UNK

REACTIONS (6)
  - Paraparesis [Unknown]
  - Gait disturbance [Recovered/Resolved]
  - Cognitive disorder [Recovered/Resolved]
  - Aphasia [Unknown]
  - Concomitant disease aggravated [Recovered/Resolved]
  - Off label use [Unknown]
